FAERS Safety Report 9158349 (Version 3)
Quarter: 2013Q2

REPORT INFORMATION
  Report Type: Spontaneous
  Country: FR (occurrence: FR)
  Receive Date: 20130312
  Receipt Date: 20130520
  Transmission Date: 20140414
  Serious: Yes (Hospitalization)
  Sender: FDA-Public Use
  Company Number: FR-TEVA-381526USA

PATIENT
  Age: 82 Year
  Sex: Female

DRUGS (13)
  1. TREANDA [Suspect]
     Indication: PLASMA CELL MYELOMA
     Route: 041
     Dates: start: 20121212, end: 20121213
  2. TREANDA [Suspect]
     Dates: start: 20121213
  3. LEXOMIL [Concomitant]
  4. ATENOLOL [Concomitant]
  5. DIFFU K [Concomitant]
  6. HEMIGOXINE [Concomitant]
  7. IMOVANE [Concomitant]
  8. COUMADINE [Concomitant]
  9. DOLIPRANE [Concomitant]
  10. LYRICA [Concomitant]
  11. MIANSERINE [Concomitant]
  12. BACTRIM [Concomitant]
  13. CLAMOXYL [Concomitant]
     Dates: end: 20130116

REACTIONS (3)
  - Thrombocytopenia [Recovered/Resolved with Sequelae]
  - Anaemia [Recovered/Resolved with Sequelae]
  - Haematoma [Recovered/Resolved]
